FAERS Safety Report 6997267-2 (Version None)
Quarter: 2010Q3

REPORT INFORMATION
  Report Type: 
  Country: None (occurrence: None)
  Receive Date: 20100918
  Receipt Date: 20090922
  Transmission Date: 20110219
  Serious: No
  Sender: FDA-Public Use
  Company Number: US-WYE-H11157309

PATIENT
  Sex: Female

DRUGS (4)
  1. EFFEXOR XR [Suspect]
     Indication: DEPRESSION
     Dosage: 150 MG, FREQUENCY NOT SPECIFIED
     Route: 048
  2. EFFEXOR XR [Suspect]
     Indication: BIPOLAR II DISORDER
     Dosage: ^LOWERED MY DOSES TO MAKE THE MEDS LAST LONGER OR DONE WITHOUT MEDS^
     Route: 048
  3. LAMICTAL [Suspect]
     Indication: DEPRESSION
     Dosage: UNKNOWN
  4. LAMICTAL [Suspect]
     Indication: BIPOLAR II DISORDER
     Dosage: ^LOWERED MY DOSES TO MAKE THE MEDS LAST LONGER OR GONE WITHOUT THE MEDS^

REACTIONS (4)
  - ACTIVITIES OF DAILY LIVING IMPAIRED [None]
  - DRUG WITHDRAWAL SYNDROME [None]
  - EMOTIONAL DISORDER [None]
  - UNEVALUABLE EVENT [None]
